FAERS Safety Report 4373593-0 (Version None)
Quarter: 2004Q1

REPORT INFORMATION
  Report Type: 
  Country: None (occurrence: None)
  Receive Date: 20040305
  Receipt Date: 20030926
  Transmission Date: 20041129
  Serious: Yes (Other)
  Sender: FDA-Public Use
  Company Number: 2003UW12359

PATIENT
  Age: 68 Year
  Sex: Male
  Weight: 78.0187 kg

DRUGS (1)
  1. CRESTOR [Suspect]
     Indication: BLOOD CHOLESTEROL INCREASED
     Dates: start: 20031002

REACTIONS (4)
  - ERECTILE DYSFUNCTION [None]
  - INTESTINAL HYPOMOTILITY [None]
  - POLLAKIURIA [None]
  - VERTIGO [None]
